FAERS Safety Report 14921356 (Version 1)
Quarter: 2018Q2

REPORT INFORMATION
  Report Type: Spontaneous
  Country: US (occurrence: US)
  Receive Date: 20180522
  Receipt Date: 20180522
  Transmission Date: 20180711
  Serious: Yes (Hospitalization)
  Sender: FDA-Public Use
  Company Number: US-BEH-2018090767

PATIENT
  Age: 18 Year
  Sex: Male
  Weight: 49.89 kg

DRUGS (28)
  1. HIZENTRA [Suspect]
     Active Substance: HUMAN IMMUNOGLOBULIN G
     Dosage: 13 G, AS DIRECTED
     Route: 058
     Dates: start: 20121016
  2. PROTOPIC [Concomitant]
     Active Substance: TACROLIMUS
  3. URSODIOL. [Concomitant]
     Active Substance: URSODIOL
  4. LYRICA [Concomitant]
     Active Substance: PREGABALIN
  5. MELOXICAM. [Concomitant]
     Active Substance: MELOXICAM
  6. HUMALOG [Concomitant]
     Active Substance: INSULIN LISPRO
  7. OMEPRAZOLE. [Concomitant]
     Active Substance: OMEPRAZOLE
  8. NASONEX [Concomitant]
     Active Substance: MOMETASONE FUROATE
  9. CLONAZEPAM. [Concomitant]
     Active Substance: CLONAZEPAM
  10. EPINEPHRINE. [Concomitant]
     Active Substance: EPINEPHRINE
  11. LEVETIRACETAM. [Concomitant]
     Active Substance: LEVETIRACETAM
  12. PROAIR HFA [Concomitant]
     Active Substance: ALBUTEROL SULFATE
  13. CYPROHEPTADINE. [Concomitant]
     Active Substance: CYPROHEPTADINE
  14. RIOMET                             /00082701/ [Concomitant]
  15. PREVACID [Concomitant]
     Active Substance: LANSOPRAZOLE
  16. ZOSYN [Concomitant]
     Active Substance: PIPERACILLIN SODIUM\TAZOBACTAM SODIUM
  17. METHYLPHENIDATE. [Concomitant]
     Active Substance: METHYLPHENIDATE
  18. HIZENTRA [Suspect]
     Active Substance: HUMAN IMMUNOGLOBULIN G
     Indication: IMMUNODEFICIENCY
     Dosage: UNK
     Route: 058
  19. ALINIA [Concomitant]
     Active Substance: NITAZOXANIDE
  20. SERTRALINE [Concomitant]
     Active Substance: SERTRALINE HYDROCHLORIDE
  21. AMANTADINE. [Concomitant]
     Active Substance: AMANTADINE HYDROCHLORIDE
  22. COMPOUND W [Concomitant]
     Active Substance: SALICYLIC ACID
  23. CLOBETASOL [Concomitant]
     Active Substance: CLOBETASOL
  24. DIPHENHYDRAMINE. [Concomitant]
     Active Substance: DIPHENHYDRAMINE
  25. ZANTAC [Concomitant]
     Active Substance: RANITIDINE HYDROCHLORIDE
  26. NYSTATIN. [Concomitant]
     Active Substance: NYSTATIN
  27. NAPROXEN. [Concomitant]
     Active Substance: NAPROXEN
  28. ENBREL [Concomitant]
     Active Substance: ETANERCEPT

REACTIONS (1)
  - Spinal cord haematoma [Unknown]

NARRATIVE: CASE EVENT DATE: 20180508
